FAERS Safety Report 20296419 (Version 1)
Quarter: 2022Q1

REPORT INFORMATION
  Report Type: Spontaneous
  Country: FR (occurrence: FR)
  Receive Date: 20220105
  Receipt Date: 20220105
  Transmission Date: 20220424
  Serious: Yes (Hospitalization, Other)
  Sender: FDA-Public Use
  Company Number: FR-VELOXIS PHARMACEUTICALS-2021VELFR-000503

PATIENT
  Age: 27 Year
  Sex: Female

DRUGS (15)
  1. PREDNISONE [Suspect]
     Active Substance: PREDNISONE
     Indication: Renal and pancreas transplant
     Dosage: UNK
     Route: 065
     Dates: start: 202104
  2. TACROLIMUS [Suspect]
     Active Substance: TACROLIMUS
     Indication: Prophylaxis against transplant rejection
     Dosage: 4 MILLIGRAM, ONCE A DAY
     Route: 065
  3. ENVARSUS XR [Suspect]
     Active Substance: TACROLIMUS
     Indication: Prophylaxis against transplant rejection
     Dosage: 5 MILLIGRAM, ONCE A DAY(FLUCTUATING DOSES (FROM 2.75 MG/DAY UP TO 5 MG/DAY)
     Route: 048
     Dates: start: 20210428, end: 20210604
  4. ENVARSUS XR [Suspect]
     Active Substance: TACROLIMUS
     Dosage: 5 MILLIGRAM, ONCE A DAY(FLUCTUATING DOSES (FROM 2.75 MG/DAY UP TO 5 MG/DAY)
     Route: 048
     Dates: start: 20210608
  5. ENVARSUS XR [Suspect]
     Active Substance: TACROLIMUS
     Dosage: 3 MILLIGRAM
     Route: 065
     Dates: start: 20210619, end: 20210713
  6. ENVARSUS XR [Suspect]
     Active Substance: TACROLIMUS
     Dosage: 4 MILLIGRAM, UNK
     Route: 065
     Dates: start: 20210714
  7. MYCOPHENOLATE MOFETIL [Suspect]
     Active Substance: MYCOPHENOLATE MOFETIL
     Indication: Renal and pancreas transplant
     Dosage: 1440 MILLIGRAM, ONCE A DAY
     Route: 065
     Dates: start: 20210415
  8. THYMOGLOBULIN [Suspect]
     Active Substance: LAPINE T-LYMPHOCYTE IMMUNE GLOBULIN
     Indication: Renal and pancreas transplant
     Dosage: UNK
     Route: 065
     Dates: start: 202104
  9. AMLODIPINE [Concomitant]
     Active Substance: AMLODIPINE BESYLATE
     Indication: Hypertension
     Dosage: UNK
     Route: 065
  10. ANTICOAGULANTE ACD [Concomitant]
     Indication: Venous thrombosis
     Dosage: UNK
     Route: 065
  11. ACETAMINOPHEN [Concomitant]
     Active Substance: ACETAMINOPHEN
     Indication: Pain
     Dosage: UNK
     Route: 065
  12. SULFAMETHOXAZOLE\TRIMETHOPRIM [Concomitant]
     Active Substance: SULFAMETHOXAZOLE\TRIMETHOPRIM
     Indication: Infection prophylaxis
     Dosage: UNK
     Route: 065
  13. URAPIDIL [Concomitant]
     Active Substance: URAPIDIL
     Indication: Hypertension
     Dosage: UNK
     Route: 065
  14. VALGANCICLOVIR [Concomitant]
     Active Substance: VALGANCICLOVIR
     Indication: Infection prophylaxis
     Dosage: UNK
     Route: 065
  15. NEFOPAM [Concomitant]
     Active Substance: NEFOPAM
     Indication: Pain
     Dosage: UNK
     Route: 065

REACTIONS (7)
  - Pyelonephritis [Recovered/Resolved]
  - Shock haemorrhagic [Recovered/Resolved]
  - Pancreatic pseudoaneurysm [Recovered/Resolved]
  - Kidney transplant rejection [Not Recovered/Not Resolved]
  - Donor specific antibody present [Unknown]
  - Renal failure [Recovered/Resolved]
  - Product prescribing error [Recovered/Resolved]

NARRATIVE: CASE EVENT DATE: 20210430
